FAERS Safety Report 21421633 (Version 1)
Quarter: 2022Q4

REPORT INFORMATION
  Report Type: Report from Study
  Country: CA (occurrence: CA)
  Receive Date: 20221007
  Receipt Date: 20221007
  Transmission Date: 20230113
  Serious: Yes (Other)
  Sender: FDA-Public Use
  Company Number: CA-JNJFOC-20221008852

PATIENT
  Age: 25 Year
  Sex: Male
  Weight: 89 kg

DRUGS (2)
  1. REMICADE [Suspect]
     Active Substance: INFLIXIMAB
     Indication: Colitis ulcerative
     Dosage: ON 04-OCT-2022, THE PATIENT COMPLETED HIS PARTIAL MAYO SURVEY AND RECEIVED HIS 122ND INFUSION WITH D
     Route: 041
     Dates: start: 20121020
  2. REMICADE [Suspect]
     Active Substance: INFLIXIMAB
     Dosage: ON 04-OCT-2022, THE PATIENT COMPLETED HIS PARTIAL MAYO SURVEY AND RECEIVED HIS 122ND INFUSION WITH
     Route: 041
     Dates: start: 20160416

REACTIONS (3)
  - Haematochezia [Not Recovered/Not Resolved]
  - General physical health deterioration [Unknown]
  - Off label use [Unknown]

NARRATIVE: CASE EVENT DATE: 20160416
